FAERS Safety Report 14301813 (Version 1)
Quarter: 2017Q4

REPORT INFORMATION
  Report Type: Spontaneous
  Country: US (occurrence: US)
  Receive Date: 20171219
  Receipt Date: 20171219
  Transmission Date: 20180321
  Serious: No
  Sender: FDA-Public Use
  Company Number: US-SUPERNUS PHARMACEUTICALS, INC.-2017SUP00152

PATIENT
  Age: 53 Year
  Sex: Male
  Weight: 140.59 kg

DRUGS (14)
  1. OXTELLAR XR [Suspect]
     Active Substance: OXCARBAZEPINE
     Dosage: 600 MG, 3X/DAY
     Route: 048
     Dates: start: 2017
  2. JANUMET [Concomitant]
     Active Substance: METFORMIN HYDROCHLORIDE\SITAGLIPTIN PHOSPHATE
  3. CYMBALTA [Concomitant]
     Active Substance: DULOXETINE HYDROCHLORIDE
  4. EPIPEN [Concomitant]
     Active Substance: EPINEPHRINE
  5. SIMVASTATIN/ZETIA [Concomitant]
  6. NORCO [Concomitant]
     Active Substance: ACETAMINOPHEN\HYDROCODONE BITARTRATE
     Dosage: UNK, AS NEEDED
  7. LYRICA [Concomitant]
     Active Substance: PREGABALIN
  8. INVOKANA [Concomitant]
     Active Substance: CANAGLIFLOZIN
  9. PROAIR INHALER [Concomitant]
     Active Substance: ALBUTEROL SULFATE
  10. OXTELLAR XR [Suspect]
     Active Substance: OXCARBAZEPINE
     Indication: DIABETIC NEUROPATHY
     Dosage: 600 MG, 1X/DAY
     Route: 048
     Dates: start: 201702, end: 2017
  11. TRESIBA [Concomitant]
     Active Substance: INSULIN DEGLUDEC
     Route: 058
  12. OXTELLAR XR [Suspect]
     Active Substance: OXCARBAZEPINE
     Dosage: 600 MG, 2X/DAY
     Route: 048
     Dates: start: 2017, end: 2017
  13. SINGULAIR [Concomitant]
     Active Substance: MONTELUKAST SODIUM
  14. CELEBREX [Concomitant]
     Active Substance: CELECOXIB

REACTIONS (2)
  - Photosensitivity reaction [Not Recovered/Not Resolved]
  - Off label use [Not Recovered/Not Resolved]

NARRATIVE: CASE EVENT DATE: 201702
